FAERS Safety Report 19658648 (Version 2)
Quarter: 2021Q4

REPORT INFORMATION
  Report Type: Spontaneous
  Country: US (occurrence: US)
  Receive Date: 20210804
  Receipt Date: 20211025
  Transmission Date: 20220303
  Serious: No
  Sender: FDA-Public Use
  Company Number: US-MYLANLABS-2021M1047311

PATIENT
  Age: 8 Year
  Sex: Female
  Weight: 27.21 kg

DRUGS (1)
  1. EPINEPHRINE [Suspect]
     Active Substance: EPINEPHRINE
     Indication: Food allergy
     Dosage: UNK UNK, PRN (AS NEEDED)
     Route: 058

REACTIONS (1)
  - Product quality issue [None]
